FAERS Safety Report 7077117-9 (Version None)
Quarter: 2010Q4

REPORT INFORMATION
  Report Type: 
  Country: None (occurrence: None)
  Receive Date: 20101101
  Receipt Date: 20101020
  Transmission Date: 20110411
  Serious: Yes (Other)
  Sender: FDA-Public Use
  Company Number: JP-ROCHE-736557

PATIENT
  Age: 70 Year
  Sex: Female

DRUGS (3)
  1. COPEGUS [Suspect]
     Indication: HEPATITIS C
     Dosage: NOTE: DOSAGE IS UNCERTAIN
     Route: 048
  2. DICLOFENAC SODIUM [Suspect]
     Dosage: DOSE FORM: PERORAL AGENT, NOTE: DOSAGE IS UNCERTAIN
     Route: 048
  3. INTERFERON BETA-1A [Suspect]
     Indication: HEPATITIS C
     Dosage: NOTE: DOSAGE IS UNCERTAIN.
     Route: 065

REACTIONS (3)
  - HAEMOLYTIC ANAEMIA [None]
  - RENAL DISORDER [None]
  - TUBULOINTERSTITIAL NEPHRITIS [None]
